FAERS Safety Report 4907336-6 (Version None)
Quarter: 2006Q1

REPORT INFORMATION
  Report Type: 
  Country: None (occurrence: None)
  Receive Date: 20060208
  Receipt Date: 20060208
  Transmission Date: 20060701
  Serious: Yes (Hospitalization)
  Sender: FDA-Public Use
  Company Number: None

PATIENT
  Age: 67 Year
  Sex: Female
  Weight: 79 kg

DRUGS (11)
  1. AMBIEN CR [Suspect]
     Indication: INSOMNIA
     Dosage: QHS   PO
     Route: 048
     Dates: start: 20060201, end: 20060202
  2. DILTIAZEM [Suspect]
     Indication: ATRIAL FIBRILLATION
     Dosage: QDAY   PO
     Route: 048
     Dates: start: 20060119, end: 20060202
  3. TOPROL-XL [Concomitant]
  4. SINGUALIR [Concomitant]
  5. PREDNISONE [Concomitant]
  6. CITRACAL [Concomitant]
  7. THEOPHYLLINE [Concomitant]
  8. ZANTAC [Concomitant]
  9. COUMADIN [Concomitant]
  10. LIPITOR [Concomitant]
  11. INHALERS [Concomitant]

REACTIONS (14)
  - DRUG ERUPTION [None]
  - FLUSHING [None]
  - INTERNATIONAL NORMALISED RATIO INCREASED [None]
  - LOCAL SWELLING [None]
  - PETECHIAE [None]
  - PYREXIA [None]
  - RASH ERYTHEMATOUS [None]
  - RASH MORBILLIFORM [None]
  - RASH PRURITIC [None]
  - RESPIRATORY FAILURE [None]
  - SEPTIC RASH [None]
  - SEPTIC SHOCK [None]
  - SKIN FRAGILITY [None]
  - SWELLING FACE [None]
